FAERS Safety Report 6892351-6 (Version None)
Quarter: 2010Q3

REPORT INFORMATION
  Report Type: 
  Country: None (occurrence: None)
  Receive Date: 20100731
  Receipt Date: 20080418
  Transmission Date: 20110219
  Serious: No
  Sender: FDA-Public Use
  Company Number: US-PFIZER INC-2008024087

PATIENT
  Sex: Male
  Weight: 14.5 kg

DRUGS (2)
  1. NEURONTIN [Suspect]
     Indication: RESTLESS LEGS SYNDROME
     Route: 048
     Dates: start: 20080214, end: 20080311
  2. ALBUTEROL [Concomitant]

REACTIONS (2)
  - CONSTIPATION [None]
  - INCORRECT STORAGE OF DRUG [None]
